FAERS Safety Report 9413308 (Version 1)
Quarter: 2013Q3

REPORT INFORMATION
  Report Type: Report from Study
  Country: US (occurrence: US)
  Receive Date: 20130722
  Receipt Date: 20130722
  Transmission Date: 20140515
  Serious: Yes (Other)
  Sender: FDA-Public Use
  Company Number: US-JNJFOC-20130711734

PATIENT
  Sex: 0

DRUGS (1)
  1. USTEKINUMAB [Suspect]
     Indication: PSORIASIS
     Route: 064
     Dates: start: 201010

REACTIONS (2)
  - Premature baby [Unknown]
  - Exposure during pregnancy [Unknown]
